APPROVED DRUG PRODUCT: BUTICAPS
Active Ingredient: BUTABARBITAL SODIUM
Strength: 15MG
Dosage Form/Route: CAPSULE;ORAL
Application: A085381 | Product #001
Applicant: MEDPOINTE PHARMACEUTICALS MEDPOINTE HEALTHCARE INC
Approved: Approved Prior to Jan 1, 1982 | RLD: No | RS: No | Type: DISCN